FAERS Safety Report 14714678 (Version 5)
Quarter: 2018Q3

REPORT INFORMATION
  Report Type: Spontaneous
  Country: CA (occurrence: CA)
  Receive Date: 20180404
  Receipt Date: 20180706
  Transmission Date: 20181010
  Serious: Yes (Other)
  Sender: FDA-Public Use
  Company Number: CA-PFIZER INC-2018123956

PATIENT
  Age: 78 Year
  Sex: Female

DRUGS (1)
  1. METHOTREXATE SODIUM. [Suspect]
     Active Substance: METHOTREXATE SODIUM
     Indication: RHEUMATOID ARTHRITIS
     Dosage: UNK
     Route: 065
     Dates: start: 20171214, end: 20180306

REACTIONS (20)
  - Abdominal distension [Unknown]
  - Asthma [Unknown]
  - Renal cancer [Unknown]
  - Vomiting [Unknown]
  - Chronic obstructive pulmonary disease [Unknown]
  - Gingival bleeding [Recovered/Resolved]
  - Hearing disability [Unknown]
  - Pneumonia [Recovering/Resolving]
  - Respiratory tract infection [Recovering/Resolving]
  - Impaired healing [Unknown]
  - Stomatitis [Unknown]
  - Renal impairment [Unknown]
  - Drug ineffective [Unknown]
  - Liver disorder [Unknown]
  - Epistaxis [Recovered/Resolved]
  - Abdominal pain [Unknown]
  - Headache [Unknown]
  - Nasopharyngitis [Recovering/Resolving]
  - Thrombosis [Unknown]
  - Drug intolerance [Unknown]
